FAERS Safety Report 6749159-1 (Version None)
Quarter: 2010Q2

REPORT INFORMATION
  Report Type: 
  Country: None (occurrence: None)
  Receive Date: 20100601
  Receipt Date: 20100525
  Transmission Date: 20101027
  Serious: Yes (Hospitalization, Other)
  Sender: FDA-Public Use
  Company Number: US-BAYER-201022331NA

PATIENT
  Age: 29 Year
  Sex: Female

DRUGS (2)
  1. BETASERON [Suspect]
     Indication: RELAPSING-REMITTING MULTIPLE SCLEROSIS
     Dosage: TOTAL DAILY DOSE: 6 MIU
     Route: 058
     Dates: start: 20100412
  2. SOLU-MEDROL [Concomitant]
     Route: 042

REACTIONS (6)
  - FATIGUE [None]
  - HEADACHE [None]
  - HYPOAESTHESIA [None]
  - MUSCLE TIGHTNESS [None]
  - VISION BLURRED [None]
  - VISUAL IMPAIRMENT [None]
